FAERS Safety Report 5661204-3 (Version None)
Quarter: 2008Q1

REPORT INFORMATION
  Report Type: 
  Country: None (occurrence: None)
  Receive Date: 20080312
  Receipt Date: 20080307
  Transmission Date: 20080703
  Serious: Yes (Other)
  Sender: FDA-Public Use
  Company Number: US-SP-2008-00716

PATIENT
  Age: 16 Year
  Sex: Female

DRUGS (4)
  1. TUBERSOL [Suspect]
     Indication: TUBERCULIN TEST
     Route: 023
     Dates: start: 20080306
  2. TUBERSOL [Suspect]
     Route: 023
     Dates: start: 20080306
  3. TUBERSOL [Suspect]
     Route: 023
     Dates: start: 20080229
  4. NOT PROVIDED [Concomitant]

REACTIONS (8)
  - ABDOMINAL PAIN [None]
  - FLUSHING [None]
  - HYPERSENSITIVITY [None]
  - INAPPROPRIATE SCHEDULE OF DRUG ADMINISTRATION [None]
  - MUSCLE SPASMS [None]
  - PAIN [None]
  - SENSATION OF HEAVINESS [None]
  - SENSORY LOSS [None]
